FAERS Safety Report 4589454-8 (Version None)
Quarter: 2005Q1

REPORT INFORMATION
  Report Type: 
  Country: None (occurrence: None)
  Receive Date: 20050216
  Receipt Date: 20050207
  Transmission Date: 20050727
  Serious: Yes (Disabling, Other)
  Sender: FDA-Public Use
  Company Number: 2004-04-1280

PATIENT
  Age: 59 Year
  Sex: Female
  Weight: 55.7924 kg

DRUGS (14)
  1. PEG-INTRON [Suspect]
     Indication: HEPATITIS C
     Dosage: SUBCUTANEOUS
     Route: 058
     Dates: start: 20040101, end: 20040408
  2. TAGAMET [Concomitant]
     Indication: HEPATITIS C
     Dosage: ORAL
     Route: 048
     Dates: start: 20040101, end: 20040408
  3. PAROXETINE HCL [Concomitant]
  4. XANAX [Concomitant]
  5. BECLOMETHASONE NASAL AEROSOL [Concomitant]
  6. ALLEGRA [Concomitant]
  7. VITAMIN B-12 [Concomitant]
  8. VITAMIN E [Concomitant]
  9. CALCIUM GLUCONATE [Concomitant]
  10. VITAMIN D [Concomitant]
  11. VIOXX [Concomitant]
  12. LORATADINE [Concomitant]
  13. BLACK COHOSH [Concomitant]
  14. PROPOXYPHENE NAPSYLATE W/ ACETAMINOPHEN [Concomitant]

REACTIONS (30)
  - ABNORMAL SENSATION IN EYE [None]
  - ARTHRALGIA [None]
  - BENIGN INTRACRANIAL HYPERTENSION [None]
  - BLINDNESS [None]
  - CATARACT [None]
  - CHEST DISCOMFORT [None]
  - CHRONIC OBSTRUCTIVE PULMONARY DISEASE [None]
  - COLOUR BLINDNESS [None]
  - ECONOMIC PROBLEM [None]
  - EPISTAXIS [None]
  - EYE SWELLING [None]
  - HEADACHE [None]
  - IMPAIRED WORK ABILITY [None]
  - MULTIPLE SCLEROSIS [None]
  - NEURALGIA [None]
  - OCCULT BLOOD POSITIVE [None]
  - OPTIC ATROPHY [None]
  - OPTIC ISCHAEMIC NEUROPATHY [None]
  - OPTIC NERVE DISORDER [None]
  - PAPILLOEDEMA [None]
  - PNEUMONIA [None]
  - PRODUCTIVE COUGH [None]
  - RASH [None]
  - SCOTOMA [None]
  - TEMPORAL ARTERITIS [None]
  - VISION BLURRED [None]
  - VISUAL ACUITY REDUCED [None]
  - VISUAL DISTURBANCE [None]
  - WEIGHT DECREASED [None]
  - WEIGHT INCREASED [None]
